FAERS Safety Report 16456440 (Version 1)
Quarter: 2019Q2

REPORT INFORMATION
  Report Type: Spontaneous
  Country: BE (occurrence: BE)
  Receive Date: 20190620
  Receipt Date: 20190620
  Transmission Date: 20190711
  Serious: Yes (Hospitalization, Other)
  Sender: FDA-Public Use
  Company Number: BE-ASTRAZENECA-2019SE87506

PATIENT
  Sex: Female

DRUGS (1)
  1. IMFINZI [Suspect]
     Active Substance: DURVALUMAB
     Route: 042
     Dates: start: 201809, end: 201905

REACTIONS (5)
  - Erythema [Unknown]
  - Pyrexia [Unknown]
  - Drug hypersensitivity [Unknown]
  - Hypotension [Unknown]
  - Anaphylactic reaction [Unknown]
